FAERS Safety Report 5925053-0 (Version None)
Quarter: 2008Q3

REPORT INFORMATION
  Report Type: 
  Country: None (occurrence: None)
  Receive Date: 20080909
  Receipt Date: 20070924
  Transmission Date: 20090109
  Serious: Yes (Hospitalization)
  Sender: FDA-Public Use
  Company Number: 163-20785-07081675

PATIENT
  Age: 73 Year
  Sex: Male

DRUGS (7)
  1. THALOMID [Suspect]
     Indication: MULTIPLE MYELOMA
     Dosage: 100 MG, QHS, ORAL ; 200 MG, 1 IN 1 D, ORAL ; QHS, ORAL
     Route: 048
     Dates: start: 20070820, end: 20070826
  2. THALOMID [Suspect]
     Indication: MULTIPLE MYELOMA
     Dosage: 100 MG, QHS, ORAL ; 200 MG, 1 IN 1 D, ORAL ; QHS, ORAL
     Route: 048
     Dates: start: 20070724
  3. THALOMID [Suspect]
     Indication: MULTIPLE MYELOMA
     Dosage: 100 MG, QHS, ORAL ; 200 MG, 1 IN 1 D, ORAL ; QHS, ORAL
     Route: 048
     Dates: start: 20070827
  4. DEXAMETHASONE TAB [Concomitant]
  5. ALKERAN [Concomitant]
  6. SYNTHROID [Concomitant]
  7. WARFARIN SODIUM [Concomitant]

REACTIONS (3)
  - ASTHENIA [None]
  - FATIGUE [None]
  - RENAL FAILURE [None]
